FAERS Safety Report 10770406 (Version 1)
Quarter: 2015Q1

REPORT INFORMATION
  Report Type: Spontaneous
  Country: US (occurrence: None)
  Receive Date: 20150204
  Receipt Date: 20150204
  Transmission Date: 20150721
  Serious: Yes (Death)
  Sender: FDA-Public Use
  Company Number: 2725398

PATIENT
  Age: 26 Year
  Sex: Male

DRUGS (9)
  1. CHLORPHENIRAMINE /00072501/ [Suspect]
     Active Substance: CHLORPHENIRAMINE
     Dates: start: 2013, end: 2013
  2. COCAINE [Suspect]
     Active Substance: COCAINE
     Dates: start: 2013, end: 2013
  3. CLONAZEPAM. [Suspect]
     Active Substance: CLONAZEPAM
     Dates: start: 2013, end: 2013
  4. CODEINE [Suspect]
     Active Substance: CODEINE
     Dates: start: 2013, end: 2013
  5. DIPHENHYDRAMINE [Suspect]
     Active Substance: DIPHENHYDRAMINE
     Dates: start: 2013, end: 2013
  6. ALPRAZOLAM. [Suspect]
     Active Substance: ALPRAZOLAM
     Dates: start: 2013, end: 2013
  7. HEROIN [Suspect]
     Active Substance: DIACETYLMORPHINE
     Dates: start: 2013, end: 2013
  8. METHADONE [Suspect]
     Active Substance: METHADONE HYDROCHLORIDE
     Dates: start: 2013, end: 2013
  9. QUININE [Suspect]
     Active Substance: QUININE
     Dates: start: 2013, end: 2013

REACTIONS (2)
  - Drug abuse [None]
  - Poisoning [None]

NARRATIVE: CASE EVENT DATE: 2013
